FAERS Safety Report 5786385-2 (Version None)
Quarter: 2008Q2

REPORT INFORMATION
  Report Type: 
  Country: None (occurrence: None)
  Receive Date: 20080624
  Receipt Date: 20080616
  Transmission Date: 20081010
  Serious: No
  Sender: FDA-Public Use
  Company Number: US-ELI_LILLY_AND_COMPANY-US200804000540

PATIENT
  Sex: Female
  Weight: 93.424 kg

DRUGS (9)
  1. BYETTA [Suspect]
     Indication: TYPE 2 DIABETES MELLITUS
     Dosage: 5 UG, 2/D
     Route: 058
     Dates: start: 20060101, end: 20060101
  2. BYETTA [Suspect]
     Dosage: 10 UG, 2/D
     Route: 058
     Dates: start: 20060101
  3. VITAMIN D [Concomitant]
     Indication: NEOPLASM MALIGNANT
     Dosage: 50000 IU, UNK
     Route: 048
  4. FEMARA [Concomitant]
     Indication: NEOPLASM MALIGNANT
  5. LEXAPRO [Concomitant]
  6. DIOVAN /SCH/ [Concomitant]
     Indication: NEUROPATHY PERIPHERAL
  7. ZOCOR [Concomitant]
     Indication: BLOOD CHOLESTEROL
  8. METFORMIN HCL [Concomitant]
     Indication: DIABETES MELLITUS
     Dosage: UNK, UNK
     Dates: start: 20060101
  9. CALCIUM [Concomitant]
     Indication: NEOPLASM MALIGNANT

REACTIONS (5)
  - COUGH [None]
  - DYSPHONIA [None]
  - NASOPHARYNGITIS [None]
  - PROCEDURAL PAIN [None]
  - RHINORRHOEA [None]
